FAERS Safety Report 6259533-8 (Version None)
Quarter: 2009Q3

REPORT INFORMATION
  Report Type: 
  Country: None (occurrence: None)
  Receive Date: 20090706
  Receipt Date: 20090706
  Transmission Date: 20100115
  Serious: Yes (Other)
  Sender: FDA-Public Use
  Company Number: None

PATIENT
  Sex: Female
  Weight: 96 kg

DRUGS (2)
  1. OXYCODONE AND ACETAMINOPHEN [Suspect]
     Indication: ANALGESIA
     Dosage: 5MG/325MG PO Q4H PRN
     Route: 048
     Dates: start: 20090624
  2. OXYCODONE AND ACETAMINOPHEN [Suspect]
     Indication: PAIN
     Dosage: 5MG/325MG PO Q4H PRN
     Route: 048
     Dates: start: 20090624

REACTIONS (1)
  - CONSTIPATION [None]
